FAERS Safety Report 15503098 (Version 1)
Quarter: 2018Q4

REPORT INFORMATION
  Report Type: Spontaneous
  Country: US (occurrence: US)
  Receive Date: 20181008
  Receipt Date: 20181008
  Transmission Date: 20190205
  Serious: Yes (Other)
  Sender: FDA-Public Use
  Company Number: None

PATIENT
  Age: 17 Year
  Sex: Male

DRUGS (1)
  1. ABILIFY [Suspect]
     Active Substance: ARIPIPRAZOLE
     Indication: PRODUCT USED FOR UNKNOWN INDICATION
     Dosage: ?          QUANTITY:1 DF DOSAGE FORM;?
     Route: 048
     Dates: start: 20120907, end: 20180911

REACTIONS (13)
  - Hyperhidrosis [None]
  - Diarrhoea [None]
  - Fatigue [None]
  - Restlessness [None]
  - Blepharospasm [None]
  - Fear [None]
  - Abdominal pain upper [None]
  - Nausea [None]
  - Headache [None]
  - Feeling hot [None]
  - Cold sweat [None]
  - Feeling abnormal [None]
  - Muscle disorder [None]

NARRATIVE: CASE EVENT DATE: 20120908
